FAERS Safety Report 20322818 (Version 2)
Quarter: 2022Q2

REPORT INFORMATION
  Report Type: Report from Study
  Country: BR (occurrence: BR)
  Receive Date: 20220111
  Receipt Date: 20220629
  Transmission Date: 20220721
  Serious: Yes (Other)
  Sender: FDA-Public Use
  Company Number: BR-JNJFOC-20220115159

PATIENT
  Age: 6 Decade
  Sex: Female
  Weight: 64 kg

DRUGS (1)
  1. INFLIXIMAB [Suspect]
     Active Substance: INFLIXIMAB
     Indication: Crohn^s disease
     Dosage: VIAL AMPOULE 100 MG
     Route: 041
     Dates: start: 20180625, end: 2021

REACTIONS (2)
  - Tuberculosis [Unknown]
  - Pain [Unknown]
